FAERS Safety Report 9684115 (Version 1)
Quarter: 2013Q4

REPORT INFORMATION
  Report Type: Spontaneous
  Country: AT (occurrence: AT)
  Receive Date: 20131112
  Receipt Date: 20131112
  Transmission Date: 20140711
  Serious: Yes (Life-Threatening, Hospitalization)
  Sender: FDA-Public Use
  Company Number: AT-ROCHE-1299049

PATIENT
  Sex: Female
  Weight: 72 kg

DRUGS (6)
  1. XELODA [Suspect]
     Indication: PRODUCT USED FOR UNKNOWN INDICATION
     Dosage: 2 1/2 - 0 - 2 1/2 EACH ON DAY 1-14.
     Route: 065
     Dates: end: 2013
  2. OXALIPLATINO KABI [Suspect]
     Indication: PRODUCT USED FOR UNKNOWN INDICATION
     Dosage: 5 MG/ML CONCENTRATE FOR SOLUTION FOR INFUSION.
     Route: 065
     Dates: start: 20130614, end: 20130712
  3. OXALIPLATINO KABI [Suspect]
     Dosage: TAG 1?5 MG/ML CONCENTRATE FOR SOLUTION FOR INFUSION.
     Route: 065
     Dates: start: 20130726, end: 20130927
  4. DORMICUM (UNSPEC) [Concomitant]
     Route: 065
  5. HALDOL [Concomitant]
  6. ZYPREXA [Concomitant]

REACTIONS (3)
  - Vertigo [Recovered/Resolved]
  - Syncope [Recovered/Resolved]
  - Ventricular tachycardia [Recovered/Resolved]
